FAERS Safety Report 12277463 (Version 1)
Quarter: 2016Q2

REPORT INFORMATION
  Report Type: Spontaneous
  Country: US (occurrence: US)
  Receive Date: 20160418
  Receipt Date: 20160418
  Transmission Date: 20160815
  Serious: No
  Sender: FDA-Public Use
  Company Number: US-LNK INTERNATIONAL, INC.-1050655

PATIENT
  Age: 78 Year
  Sex: Female

DRUGS (1)
  1. WOMENS GENTLE LAXATIVE [Suspect]
     Active Substance: BISACODYL
     Indication: CONSTIPATION

REACTIONS (2)
  - Diarrhoea [None]
  - Haematochezia [None]
